FAERS Safety Report 7744427 (Version 40)
Quarter: 2013Q4

REPORT INFORMATION
  Report Type: Report from Study
  Country: CA (occurrence: CA)
  Receive Date: 20101230
  Receipt Date: 20131021
  Transmission Date: 20140711
  Serious: Yes (Death, Other)
  Sender: FDA-Public Use
  Company Number: CA-ROCHE-750075

PATIENT
  Age: 67 Year
  Sex: Female
  Weight: 60 kg

DRUGS (21)
  1. AVASTIN [Suspect]
     Indication: NON-SMALL CELL LUNG CANCER METASTATIC
     Route: 042
     Dates: start: 20100625, end: 20130103
  2. AVASTIN [Suspect]
     Route: 042
  3. AVASTIN [Suspect]
     Route: 042
  4. AVASTIN [Suspect]
     Route: 042
  5. AVASTIN [Suspect]
     Route: 042
  6. AVASTIN [Suspect]
     Route: 042
  7. AVASTIN [Suspect]
     Route: 042
  8. AVASTIN [Suspect]
     Route: 042
  9. AVASTIN [Suspect]
     Route: 042
  10. AVASTIN [Suspect]
     Route: 042
  11. AVASTIN [Suspect]
     Route: 042
  12. AVASTIN [Suspect]
     Route: 042
  13. AVASTIN [Suspect]
     Route: 042
     Dates: start: 20121206, end: 201212
  14. AVASTIN [Suspect]
     Route: 042
     Dates: start: 20100625, end: 20130827
  15. AVASTIN [Suspect]
     Route: 042
  16. AVASTIN [Suspect]
     Route: 042
  17. TARCEVA [Suspect]
     Indication: LUNG NEOPLASM MALIGNANT
     Route: 048
  18. TARCEVA [Suspect]
     Route: 048
     Dates: start: 2011, end: 201304
  19. DICHLOROACETIC ACID [Concomitant]
     Indication: PRODUCT USED FOR UNKNOWN INDICATION
     Route: 065
     Dates: start: 20130413, end: 20130416
  20. CEFPODOXIME [Concomitant]
     Indication: URINARY TRACT INFECTION
     Dosage: MAY 4 AFTER A 6 DAY COURSE.
     Route: 065
     Dates: start: 20130428
  21. KEPPRA [Concomitant]
     Route: 065

REACTIONS (31)
  - Death [Fatal]
  - Oncologic complication [Not Recovered/Not Resolved]
  - Disease progression [Not Recovered/Not Resolved]
  - Pain [Not Recovered/Not Resolved]
  - Local swelling [Not Recovered/Not Resolved]
  - Dizziness [Unknown]
  - Dyspnoea [Unknown]
  - Fatigue [Not Recovered/Not Resolved]
  - Arthralgia [Unknown]
  - Asthenia [Not Recovered/Not Resolved]
  - Neck pain [Unknown]
  - Pain in extremity [Not Recovered/Not Resolved]
  - Hypoaesthesia [Recovered/Resolved]
  - Sinus congestion [Not Recovered/Not Resolved]
  - Nasopharyngitis [Not Recovered/Not Resolved]
  - Influenza [Unknown]
  - Cystitis [Recovered/Resolved]
  - Hypertension [Not Recovered/Not Resolved]
  - Urinary tract infection [Recovered/Resolved]
  - Nasopharyngitis [Recovered/Resolved]
  - Anxiety [Unknown]
  - Cystitis [Recovered/Resolved]
  - Diarrhoea [Unknown]
  - Constipation [Not Recovered/Not Resolved]
  - Nausea [Unknown]
  - Decreased appetite [Unknown]
  - Fall [Unknown]
  - Fatigue [Not Recovered/Not Resolved]
  - Mobility decreased [Unknown]
  - Sinusitis [Recovering/Resolving]
  - Gait disturbance [Not Recovered/Not Resolved]
